FAERS Safety Report 24233499 (Version 1)
Quarter: 2024Q3

REPORT INFORMATION
  Report Type: Spontaneous
  Country: US (occurrence: None)
  Receive Date: 20240821
  Receipt Date: 20240821
  Transmission Date: 20241017
  Serious: Yes (Hospitalization)
  Sender: Public
  Company Number: None

PATIENT
  Age: 53 Year
  Sex: Female

DRUGS (1)
  1. CINACALCET HYDROCHLORIDE [Suspect]
     Active Substance: CINACALCET HYDROCHLORIDE
     Indication: Hypoparathyroidism secondary
     Dosage: FREQUENCY : DAILY;?
     Route: 048
     Dates: start: 202405

REACTIONS (3)
  - Urinary tract infection bacterial [None]
  - Blood urine present [None]
  - Renal transplant [None]

NARRATIVE: CASE EVENT DATE: 20240629
